FAERS Safety Report 18575948 (Version 1)
Quarter: 2020Q4

REPORT INFORMATION
  Report Type: Spontaneous
  Country: US (occurrence: US)
  Receive Date: 20201203
  Receipt Date: 20201203
  Transmission Date: 20210114
  Serious: Yes (Other)
  Sender: FDA-Public Use
  Company Number: US-PURDUE-USA-2020-0175495

PATIENT
  Sex: Female

DRUGS (2)
  1. OXYCODONE HYDROCHLORIDE (SIMILAR TO NDA 22-272) [Suspect]
     Active Substance: OXYCODONE HYDROCHLORIDE
     Indication: PRODUCT USED FOR UNKNOWN INDICATION
     Dosage: UNK, UNK
     Route: 048
     Dates: start: 2011, end: 2020
  2. OXYCONTIN [Suspect]
     Active Substance: OXYCODONE HYDROCHLORIDE
     Indication: PRODUCT USED FOR UNKNOWN INDICATION
     Dosage: UNK UNK, UNK
     Route: 048
     Dates: start: 2011, end: 2020

REACTIONS (12)
  - Suicidal ideation [Unknown]
  - Seizure [Unknown]
  - Gastrointestinal disorder [Unknown]
  - Drug withdrawal syndrome [Unknown]
  - Ventricular extrasystoles [Unknown]
  - Mental disorder [Unknown]
  - Vomiting [Unknown]
  - Haematemesis [Unknown]
  - Amnesia [Unknown]
  - Malaise [Unknown]
  - Tooth extraction [Unknown]
  - Dental caries [Unknown]
